FAERS Safety Report 10244152 (Version 1)
Quarter: 2014Q1

REPORT INFORMATION
  Report Type: Spontaneous
  Country: US (occurrence: None)
  Receive Date: 20140306
  Receipt Date: 20140306
  Transmission Date: 20141002
  Serious: Yes (Other)
  Sender: FDA-Public Use
  Company Number: 163-21880-13052974

PATIENT
  Age: 81 Year
  Sex: Male
  Weight: 81.65 kg

DRUGS (8)
  1. REVLIMID (LENALIDOMIDE) (25 MILLIGRAM, CAPSULES) [Suspect]
     Indication: PLASMA CELL MYELOMA
     Route: 048
     Dates: start: 201106
  2. ASPIRIN (ACETYLSALICYLIC ACID) (UNKNOWN) (ACETYLSALICYLIC ACID) [Concomitant]
  3. NEXIUM (ESOMEPRAZOLE) (UNKNOWN) [Concomitant]
  4. VITAMIN B1 (THIAMINE HYDROCHLORIDE) (UNKNOWN) [Concomitant]
  5. VITAMIN C (ASCORBIC ACID) (UNKNOWN) [Concomitant]
  6. VITAMIN E (TOCOPHEROL) (UNKNOWN) [Concomitant]
  7. VITAMIN B6 (PYRIDDOXINE HYDROCHLORIDE) (UNKNOWN) [Concomitant]
  8. GLIPIZIDE XL (GLIPIZIDE) (UNKNOWN) [Concomitant]

REACTIONS (2)
  - Back disorder [None]
  - Fall [None]
